FAERS Safety Report 17591887 (Version 1)
Quarter: 2020Q1

REPORT INFORMATION
  Report Type: Spontaneous
  Country: US (occurrence: US)
  Receive Date: 20200327
  Receipt Date: 20200327
  Transmission Date: 20200409
  Serious: Yes (Hospitalization, Other)
  Sender: FDA-Public Use
  Company Number: None

PATIENT
  Age: 48 Year
  Sex: Male

DRUGS (14)
  1. AMOXICILLIN. [Concomitant]
     Active Substance: AMOXICILLIN
  2. BENZONATATE. [Concomitant]
     Active Substance: BENZONATATE
  3. SIMVASTATIN. [Concomitant]
     Active Substance: SIMVASTATIN
  4. METOPROL TAR [Concomitant]
  5. FEROSUL [Concomitant]
     Active Substance: FERROUS SULFATE
  6. ASPIRIN. [Concomitant]
     Active Substance: ASPIRIN
  7. COSENTYX [Suspect]
     Active Substance: SECUKINUMAB
     Indication: PSORIASIS
     Dosage: ?          OTHER FREQUENCY:ONCE MONTHLY;?
     Route: 058
     Dates: start: 20190822
  8. COLCHICINE. [Concomitant]
     Active Substance: COLCHICINE
  9. PROMETH/COD [Concomitant]
  10. OXYCODONE [Concomitant]
     Active Substance: OXYCODONE
  11. TADALAFIL. [Concomitant]
     Active Substance: TADALAFIL
  12. POT CHLORIDE [Concomitant]
     Active Substance: POTASSIUM CHLORIDE
  13. FUROSEMIDE. [Concomitant]
     Active Substance: FUROSEMIDE
  14. ASPIRIN. [Concomitant]
     Active Substance: ASPIRIN

REACTIONS (2)
  - Condition aggravated [None]
  - Therapy cessation [None]
